FAERS Safety Report 10650597 (Version 1)
Quarter: 2014Q4

REPORT INFORMATION
  Report Type: Spontaneous
  Country: US (occurrence: US)
  Receive Date: 20141214
  Receipt Date: 20141214
  Transmission Date: 20150529
  Serious: No
  Sender: FDA-Public Use
  Company Number: US-BAUSCH-SYM-2014-23140

PATIENT
  Age: 62 Year
  Sex: Female

DRUGS (1)
  1. XENAZINE [Suspect]
     Active Substance: TETRABENAZINE
     Indication: HUNTINGTON^S DISEASE
     Dosage: ? TABLET DAILY
     Route: 048
     Dates: start: 20140702

REACTIONS (2)
  - Limb injury [Unknown]
  - Drug administration error [Unknown]

NARRATIVE: CASE EVENT DATE: 20140802
